FAERS Safety Report 23626905 (Version 2)
Quarter: 2024Q1

REPORT INFORMATION
  Report Type: Spontaneous
  Country: US (occurrence: US)
  Receive Date: 20240313
  Receipt Date: 20240319
  Transmission Date: 20240410
  Serious: Yes (Other)
  Sender: FDA-Public Use
  Company Number: US-PFIZER INC-202400062480

PATIENT
  Age: 60 Year
  Sex: Male

DRUGS (2)
  1. BOSULIF [Suspect]
     Active Substance: BOSUTINIB MONOHYDRATE
     Dosage: 100 MG, DAILY (TAKE 1 TABLET DAILY)
     Route: 048
     Dates: start: 202002
  2. SPRYCEL [Suspect]
     Active Substance: DASATINIB
     Dosage: UNK

REACTIONS (2)
  - Lung operation [Not Recovered/Not Resolved]
  - Pleural effusion [Not Recovered/Not Resolved]
